FAERS Safety Report 10233035 (Version 1)
Quarter: 2014Q2

REPORT INFORMATION
  Report Type: Spontaneous
  Country: US (occurrence: US)
  Receive Date: 20140612
  Receipt Date: 20140612
  Transmission Date: 20141212
  Serious: No
  Sender: FDA-Public Use
  Company Number: US-PFIZER INC-2014157361

PATIENT
  Age: 62 Year
  Sex: Female
  Weight: 149.66 kg

DRUGS (18)
  1. LYRICA [Suspect]
     Indication: FIBROMYALGIA
     Dosage: 300 MG, 2X/DAY
     Route: 048
     Dates: start: 2009
  2. BLOCADREN [Concomitant]
     Indication: HEART RATE IRREGULAR
     Dosage: UNK
     Dates: start: 1984
  3. PRILOSEC [Concomitant]
     Dosage: 40 MG, UNK
  4. BACLOFEN [Concomitant]
     Dosage: UNK
  5. FLEXERIL [Concomitant]
     Dosage: UNK
  6. METHADONE [Concomitant]
     Indication: PAIN
     Dosage: UNK
  7. VICODIN [Concomitant]
     Dosage: UNK
  8. COLACE [Concomitant]
     Dosage: UNK
  9. AMBIEN [Concomitant]
     Dosage: UNK
  10. CALCIUM [Concomitant]
     Dosage: UNK
  11. XARELTO [Concomitant]
     Dosage: UNK
  12. PSEUDOEPHEDRINE [Concomitant]
     Dosage: UNK
  13. VITAMIN D [Concomitant]
     Dosage: UNK
  14. ASPIRIN [Concomitant]
     Dosage: UNK, AS NEEDED
  15. FISH OIL [Concomitant]
     Dosage: UNK
  16. CINNAMON [Concomitant]
     Dosage: UNK
  17. COENZYME Q10 [Concomitant]
     Dosage: UNK
  18. DEHYDROEPIANDROSTERONE [Concomitant]
     Dosage: UNK

REACTIONS (7)
  - Hepatic enzyme increased [Unknown]
  - Blood glucose increased [Unknown]
  - Blood triglycerides increased [Unknown]
  - C-reactive protein increased [Unknown]
  - Vitamin D decreased [Unknown]
  - Face injury [Unknown]
  - Fall [Unknown]
